FAERS Safety Report 5006681-6 (Version None)
Quarter: 2006Q2

REPORT INFORMATION
  Report Type: 
  Country: None (occurrence: None)
  Receive Date: 20060519
  Receipt Date: 20060509
  Transmission Date: 20061013
  Serious: Yes (Hospitalization)
  Sender: FDA-Public Use
  Company Number: PHBS2006AT07026

PATIENT
  Age: 72 Year
  Sex: Male

DRUGS (5)
  1. ZOMETA [Suspect]
     Indication: MULTIPLE MYELOMA
     Dosage: UNK, UNK
     Route: 065
     Dates: start: 20030101
  2. THROMBO ASS [Concomitant]
     Dosage: 100 MG, QD
     Route: 065
  3. PROSTATILAT [Concomitant]
     Dosage: 4 MG, QD
     Route: 065
  4. DICLOBENE [Concomitant]
     Dosage: 100 MG, BID
     Route: 065
  5. TRAMADOL HCL [Concomitant]
     Dosage: 30 DRP, TID
     Route: 065

REACTIONS (6)
  - BONE TRIMMING [None]
  - JAW OPERATION [None]
  - OSTEOMYELITIS [None]
  - OSTEONECROSIS [None]
  - SEQUESTRECTOMY [None]
  - WOUND CLOSURE [None]
